FAERS Safety Report 11439015 (Version 1)
Quarter: 2015Q3

REPORT INFORMATION
  Report Type: Spontaneous
  Country: US (occurrence: US)
  Receive Date: 20150901
  Receipt Date: 20150901
  Transmission Date: 20151125
  Serious: No
  Sender: FDA-Public Use
  Company Number: US-ROCHE-1117058

PATIENT
  Sex: Male

DRUGS (4)
  1. INCIVEK [Concomitant]
     Active Substance: TELAPREVIR
     Indication: HEPATITIS C
  2. TYLENOL [Concomitant]
     Active Substance: ACETAMINOPHEN
  3. PEGASYS [Suspect]
     Active Substance: PEGINTERFERON ALFA-2A
     Indication: HEPATITIS C
     Route: 065
  4. COPEGUS [Suspect]
     Active Substance: RIBAVIRIN
     Indication: HEPATITIS C
     Route: 065

REACTIONS (4)
  - Diarrhoea [Unknown]
  - Feeling hot [Unknown]
  - Fatigue [Unknown]
  - Pollakiuria [Unknown]
